FAERS Safety Report 16716217 (Version 4)
Quarter: 2019Q4

REPORT INFORMATION
  Report Type: Report from Study
  Country: US (occurrence: US)
  Receive Date: 20190819
  Receipt Date: 20191219
  Transmission Date: 20200122
  Serious: Yes (Death, Hospitalization)
  Sender: FDA-Public Use
  Company Number: US-ACTELION-A-NJ2019-194348

PATIENT
  Age: 65 Year
  Sex: Male

DRUGS (8)
  1. COZAAR [Concomitant]
     Active Substance: LOSARTAN POTASSIUM
     Dosage: 25 MG
     Dates: start: 20150727
  2. REMODULIN [Concomitant]
     Active Substance: TREPROSTINIL
  3. BUPROPION. [Concomitant]
     Active Substance: BUPROPION
     Dosage: 200 MG
     Dates: start: 20150727
  4. LIPITOR [Concomitant]
     Active Substance: ATORVASTATIN CALCIUM
     Dosage: 10 MG
     Dates: start: 20150727
  5. ASPIRIN 81 [Concomitant]
     Active Substance: ASPIRIN
     Dosage: UNK
     Dates: start: 20150727
  6. OPSUMIT [Suspect]
     Active Substance: MACITENTAN
     Indication: PULMONARY ARTERIAL HYPERTENSION
     Dosage: 10 MG, QD
     Route: 048
     Dates: start: 20151124
  7. COREG [Concomitant]
     Active Substance: CARVEDILOL
     Dosage: 3.125 MG
     Dates: start: 20150727
  8. TYVASO [Concomitant]
     Active Substance: TREPROSTINIL

REACTIONS (4)
  - Death [Fatal]
  - Pneumonia [Unknown]
  - Dyspnoea [Recovered/Resolved]
  - Pleural effusion [Unknown]

NARRATIVE: CASE EVENT DATE: 201907
